FAERS Safety Report 6498855-2 (Version None)
Quarter: 2009Q4

REPORT INFORMATION
  Report Type: 
  Country: None (occurrence: None)
  Receive Date: 20091127
  Receipt Date: 20081029
  Transmission Date: 20100525
  Serious: No
  Sender: FDA-Public Use
  Company Number: 280960

PATIENT
  Age: 10 Year
  Sex: Female

DRUGS (1)
  1. NOVOLOG [Suspect]
     Indication: TYPE 1 DIABETES MELLITUS
     Dates: start: 20080101

REACTIONS (1)
  - ALOPECIA [None]
